FAERS Safety Report 12752128 (Version 1)
Quarter: 2016Q3

REPORT INFORMATION
  Report Type: Spontaneous
  Country: CA (occurrence: US)
  Receive Date: 20160915
  Receipt Date: 20160915
  Transmission Date: 20161109
  Serious: Yes (Hospitalization)
  Sender: FDA-Public Use
  Company Number: None

PATIENT
  Age: 74 Year
  Sex: Female
  Weight: 57.6 kg

DRUGS (1)
  1. MEMANTINE HYDROCHLORIDE. [Suspect]
     Active Substance: MEMANTINE HYDROCHLORIDE
     Dates: end: 20160908

REACTIONS (5)
  - Impaired self-care [None]
  - Hyponatraemia [None]
  - Mobility decreased [None]
  - Infection [None]
  - Muscular weakness [None]

NARRATIVE: CASE EVENT DATE: 20160909
